FAERS Safety Report 24463082 (Version 1)
Quarter: 2024Q4

REPORT INFORMATION
  Report Type: Report from Study
  Country: US (occurrence: US)
  Receive Date: 20241018
  Receipt Date: 20241018
  Transmission Date: 20250114
  Serious: No
  Sender: ROCHE
  Company Number: US-ROCHE-2778150

PATIENT
  Age: 71 Year
  Sex: Male

DRUGS (12)
  1. XOLAIR [Suspect]
     Active Substance: OMALIZUMAB
     Indication: Idiopathic urticaria
     Route: 058
  2. XOLAIR [Suspect]
     Active Substance: OMALIZUMAB
  3. AMBIEN [Concomitant]
     Active Substance: ZOLPIDEM TARTRATE
  4. AMOXICILLIN [Concomitant]
     Active Substance: AMOXICILLIN
  5. ATORVASTATIN [Concomitant]
     Active Substance: ATORVASTATIN
  6. CELEBREX [Concomitant]
     Active Substance: CELECOXIB
  7. CLARITIN [Concomitant]
     Active Substance: LORATADINE
  8. DOXAZOSIN [Concomitant]
     Active Substance: DOXAZOSIN\DOXAZOSIN MESYLATE
  9. HYDROCHLOROTHIAZIDE [Concomitant]
     Active Substance: HYDROCHLOROTHIAZIDE
  10. OMEPRAZOLE [Concomitant]
     Active Substance: OMEPRAZOLE
  11. TRAMADOL [Concomitant]
     Active Substance: TRAMADOL
  12. VENTOLIN [Concomitant]
     Active Substance: ALBUTEROL SULFATE

REACTIONS (3)
  - Off label use [Unknown]
  - Intentional product misuse [Unknown]
  - No adverse event [Unknown]
